FAERS Safety Report 4343854-X (Version None)
Quarter: 2004Q2

REPORT INFORMATION
  Report Type: 
  Country: None (occurrence: None)
  Receive Date: 20040421
  Receipt Date: 20040421
  Transmission Date: 20050107
  Serious: Yes (Hospitalization)
  Sender: FDA-Public Use
  Company Number: None

PATIENT

DRUGS (3)
  1. TOPIRMATE [Suspect]
     Dosage: 400 MG BID
  2. PHENYTOIN [Suspect]
     Dosage: 100 MG Q AM AND NOON, 250 MG HS
  3. CLONAZEPAM [Suspect]

REACTIONS (2)
  - CONVULSION [None]
  - MEDICATION ERROR [None]
